FAERS Safety Report 25092745 (Version 1)
Quarter: 2025Q1

REPORT INFORMATION
  Report Type: Spontaneous
  Country: PL (occurrence: PL)
  Receive Date: 20250319
  Receipt Date: 20250319
  Transmission Date: 20250409
  Serious: Yes (Other)
  Sender: GENMAB
  Company Number: PL-ABBVIE-6179596

PATIENT
  Sex: Female

DRUGS (2)
  1. EPCORITAMAB [Suspect]
     Active Substance: EPCORITAMAB
     Indication: Diffuse large B-cell lymphoma
     Route: 058
     Dates: start: 2024
  2. ZYNLONTA [LONCASTUXIMAB TESIRINE] [Concomitant]
     Indication: Diffuse large B-cell lymphoma
     Route: 065

REACTIONS (4)
  - Gastrointestinal disorder [Unknown]
  - Intestinal mucosal hypertrophy [Unknown]
  - Thrombocytopenia [Unknown]
  - Drug ineffective [Unknown]

NARRATIVE: CASE EVENT DATE: 20241201
